FAERS Safety Report 6584794-5 (Version None)
Quarter: 2010Q1

REPORT INFORMATION
  Report Type: 
  Country: None (occurrence: None)
  Receive Date: 20100217
  Receipt Date: 20100210
  Transmission Date: 20100710
  Serious: Yes (Hospitalization, Other)
  Sender: FDA-Public Use
  Company Number: ES-ABBOTT-10P-144-0625647-00

PATIENT
  Age: 72 Year
  Sex: Female

DRUGS (5)
  1. HUMIRA [Suspect]
     Indication: RHEUMATOID ARTHRITIS
     Route: 058
     Dates: start: 20070101, end: 20090901
  2. URBASON [Concomitant]
     Indication: DRUG USE FOR UNKNOWN INDICATION
  3. CLEXANE [Concomitant]
     Indication: DRUG USE FOR UNKNOWN INDICATION
  4. PARACETAMOL [Concomitant]
     Indication: DRUG USE FOR UNKNOWN INDICATION
  5. ASTONIT [Concomitant]
     Indication: ACUTE PRERENAL FAILURE

REACTIONS (4)
  - ASCITES [None]
  - DISSEMINATED TUBERCULOSIS [None]
  - GASTROINTESTINAL STOMA COMPLICATION [None]
  - PERITONITIS [None]
